FAERS Safety Report 4837136-7 (Version None)
Quarter: 2005Q4

REPORT INFORMATION
  Report Type: 
  Country: None (occurrence: None)
  Receive Date: 20051122
  Receipt Date: 20051109
  Transmission Date: 20060501
  Serious: Yes (Disabling, Other)
  Sender: FDA-Public Use
  Company Number: 2005156295

PATIENT
  Sex: Male

DRUGS (8)
  1. LIPITOR [Suspect]
     Indication: ILL-DEFINED DISORDER
     Dosage: UNKNOWN
     Route: 065
  2. NEXIUM [Suspect]
     Indication: ILL-DEFINED DISORDER
     Dosage: UNKNOWN
     Route: 065
  3. NORTRIPTYLINE HCL [Suspect]
     Indication: ILL-DEFINED DISORDER
     Dosage: UNKNOWN
     Route: 065
  4. EFFEXOR XR [Suspect]
     Indication: ILL-DEFINED DISORDER
     Dosage: UNKNOWN
     Route: 065
  5. VALIUM [Suspect]
     Indication: ILL-DEFINED DISORDER
     Dosage: UNKNOWN
     Route: 065
  6. CODEINE SUL TAB [Suspect]
     Indication: ILL-DEFINED DISORDER
     Dosage: UNKNOWN
     Route: 065
  7. MORPHINE [Concomitant]
  8. CELEBREX [Concomitant]

REACTIONS (6)
  - BRAIN DAMAGE [None]
  - BRAIN NEOPLASM [None]
  - HEADACHE [None]
  - MEMORY IMPAIRMENT [None]
  - NERVE INJURY [None]
  - PAIN IN EXTREMITY [None]
